FAERS Safety Report 7115276-X (Version None)
Quarter: 2010Q4

REPORT INFORMATION
  Report Type: 
  Country: None (occurrence: None)
  Receive Date: 20101117
  Receipt Date: 20101117
  Transmission Date: 20110411
  Serious: Yes (Hospitalization)
  Sender: FDA-Public Use
  Company Number: None

PATIENT
  Age: 62 Year
  Sex: Male
  Weight: 115.53 kg

DRUGS (6)
  1. WARFARIN SODIUM [Suspect]
     Indication: ATRIAL FIBRILLATION
     Dosage: 5 MG EVERY DAY PO
     Route: 048
     Dates: start: 20100818
  2. WARFARIN SODIUM [Suspect]
     Indication: CARDIOVASCULAR DISORDER
     Dosage: 5 MG EVERY DAY PO
     Route: 048
     Dates: start: 20100818
  3. WARFARIN SODIUM [Suspect]
     Indication: SURGERY
     Dosage: 5 MG EVERY DAY PO
     Route: 048
     Dates: start: 20100818
  4. ENOXAPARIN SODIUM [Suspect]
     Indication: ATRIAL FIBRILLATION
     Dosage: 120 MG BID SQ
     Route: 058
     Dates: start: 20101027, end: 20101104
  5. ENOXAPARIN SODIUM [Suspect]
     Indication: CARDIOVASCULAR DISORDER
     Dosage: 120 MG BID SQ
     Route: 058
     Dates: start: 20101027, end: 20101104
  6. ENOXAPARIN SODIUM [Suspect]
     Indication: SURGERY
     Dosage: 120 MG BID SQ
     Route: 058
     Dates: start: 20101027, end: 20101104

REACTIONS (2)
  - CATHETER SITE PAIN [None]
  - HAEMORRHAGE [None]
